FAERS Safety Report 19352767 (Version 2)
Quarter: 2022Q1

REPORT INFORMATION
  Report Type: Report from Study
  Country: US (occurrence: US)
  Receive Date: 20210601
  Receipt Date: 20220310
  Transmission Date: 20220423
  Serious: Yes (Hospitalization, Other)
  Sender: FDA-Public Use
  Company Number: US-SHIRE-US202031703

PATIENT
  Age: 67 Year
  Sex: Female

DRUGS (1)
  1. HUMAN IMMUNOGLOBULIN G [Suspect]
     Active Substance: HUMAN IMMUNOGLOBULIN G
     Indication: Primary immunodeficiency syndrome
     Dosage: 70 GRAM, MONTHLY
     Route: 042
     Dates: end: 202106

REACTIONS (11)
  - Sepsis [Unknown]
  - Nephrolithiasis [Unknown]
  - Renal failure [Unknown]
  - Selective IgA immunodeficiency [Unknown]
  - Epistaxis [Unknown]
  - Sinus disorder [Not Recovered/Not Resolved]
  - Infusion related reaction [Unknown]
  - Injection site extravasation [Unknown]
  - Pain [Unknown]
  - Blood pressure increased [Unknown]
  - Arthralgia [Not Recovered/Not Resolved]

NARRATIVE: CASE EVENT DATE: 20200501
